FAERS Safety Report 21995038 (Version 16)
Quarter: 2025Q1

REPORT INFORMATION
  Report Type: Report from Study
  Country: US (occurrence: US)
  Receive Date: 20230215
  Receipt Date: 20250311
  Transmission Date: 20250409
  Serious: Yes (Other)
  Sender: TAKEDA
  Company Number: US-TAKEDA-US202026085

PATIENT
  Age: 47 Year
  Sex: Female
  Weight: 98 kg

DRUGS (32)
  1. HUMAN IMMUNOGLOBULIN G [Suspect]
     Active Substance: HUMAN IMMUNOGLOBULIN G
     Indication: Primary immunodeficiency syndrome
     Dosage: 10 GRAM, 1/WEEK
     Dates: start: 20191030
  2. HUMAN IMMUNOGLOBULIN G [Suspect]
     Active Substance: HUMAN IMMUNOGLOBULIN G
     Indication: Hypergammaglobulinaemia
     Dosage: 20 GRAM, Q2WEEKS
  3. HUMAN IMMUNOGLOBULIN G [Suspect]
     Active Substance: HUMAN IMMUNOGLOBULIN G
     Indication: Immune system disorder
  4. DIPHENHYDRAMINE [Concomitant]
     Active Substance: DIPHENHYDRAMINE
  5. EPINEPHRINE [Concomitant]
     Active Substance: EPINEPHRINE
  6. BIOTIN [Concomitant]
     Active Substance: BIOTIN
  7. HERBALS\TURMERIC [Concomitant]
     Active Substance: HERBALS\TURMERIC
  8. SUDAFED [Concomitant]
     Active Substance: PSEUDOEPHEDRINE HYDROCHLORIDE
  9. AUGMENTIN [Concomitant]
     Active Substance: AMOXICILLIN\CLAVULANATE POTASSIUM
  10. PREDNISONE [Concomitant]
     Active Substance: PREDNISONE
  11. ZYRTEC [Concomitant]
     Active Substance: CETIRIZINE HYDROCHLORIDE
  12. ACETAMINOPHEN [Concomitant]
     Active Substance: ACETAMINOPHEN
  13. AMOXICILLIN [Concomitant]
     Active Substance: AMOXICILLIN
  14. NORTREL [Concomitant]
     Active Substance: ETHINYL ESTRADIOL\NORETHINDRONE
  15. NEXIUM [Concomitant]
     Active Substance: ESOMEPRAZOLE MAGNESIUM
  16. ALVESCO [Concomitant]
     Active Substance: CICLESONIDE
  17. BENADRYL [Concomitant]
     Active Substance: DIPHENHYDRAMINE HYDROCHLORIDE
     Indication: Erythema
  18. LIDOCAINE [Concomitant]
     Active Substance: LIDOCAINE
  19. EFFEXOR [Concomitant]
     Active Substance: VENLAFAXINE HYDROCHLORIDE
  20. ALBUTEROL SULFATE [Concomitant]
     Active Substance: ALBUTEROL SULFATE
  21. DIPHENHYDRAMINE HYDROCHLORIDE [Concomitant]
     Active Substance: DIPHENHYDRAMINE HYDROCHLORIDE
  22. TYLENOL EXTRA STRENGTH [Concomitant]
     Active Substance: ACETAMINOPHEN
  23. PAROXETINE HYDROCHLORIDE [Concomitant]
     Active Substance: PAROXETINE HYDROCHLORIDE
  24. N acetyl l cysteine [Concomitant]
  25. GLYCINE [Concomitant]
     Active Substance: GLYCINE
  26. DIPHENHYDRAMINE HYDROCHLORIDE [Concomitant]
     Active Substance: DIPHENHYDRAMINE HYDROCHLORIDE
  27. DESVENLAFAXINE SUCCINATE [Concomitant]
     Active Substance: DESVENLAFAXINE SUCCINATE
  28. ACIDOPHILUS [Concomitant]
     Active Substance: LACTOBACILLUS ACIDOPHILUS
  29. LEVALBUTEROL [Concomitant]
     Active Substance: LEVALBUTEROL
  30. BUDESONIDE\FORMOTEROL FUMARATE [Concomitant]
     Active Substance: BUDESONIDE\FORMOTEROL FUMARATE
  31. XANAX [Concomitant]
     Active Substance: ALPRAZOLAM
  32. METOPROLOL TARTRATE [Concomitant]
     Active Substance: METOPROLOL TARTRATE

REACTIONS (30)
  - Choking [Unknown]
  - Anaphylactic reaction [Unknown]
  - Bursitis [Unknown]
  - Weight increased [Unknown]
  - Sinusitis [Recovering/Resolving]
  - Onychomycosis [Unknown]
  - Obstruction [Unknown]
  - COVID-19 [Unknown]
  - Food allergy [Unknown]
  - Obstructive airways disorder [Unknown]
  - Gastrooesophageal reflux disease [Unknown]
  - Upper respiratory tract infection [Not Recovered/Not Resolved]
  - Infusion site discharge [Recovered/Resolved]
  - Gastroenteritis viral [Unknown]
  - Needle issue [Unknown]
  - Cardiac disorder [Unknown]
  - Product distribution issue [Unknown]
  - Throat tightness [Unknown]
  - Infusion site discolouration [Unknown]
  - Influenza [Unknown]
  - Anxiety [Unknown]
  - Chest pain [Unknown]
  - Blood pressure increased [Unknown]
  - Erythema [Unknown]
  - Migraine [Unknown]
  - Tachycardia [Unknown]
  - Infusion site pruritus [Unknown]
  - Vomiting [Unknown]
  - Urticaria [Unknown]
  - Headache [Unknown]

NARRATIVE: CASE EVENT DATE: 20241029
